FAERS Safety Report 4415479-9 (Version None)
Quarter: 2004Q2

REPORT INFORMATION
  Report Type: 
  Country: None (occurrence: None)
  Receive Date: 20040630
  Receipt Date: 20030627
  Transmission Date: 20050107
  Serious: Yes (Hospitalization)
  Sender: FDA-Public Use
  Company Number: 2003019001

PATIENT
  Age: 76 Year
  Sex: Female

DRUGS (4)
  1. ZOLOFT [Suspect]
     Indication: DEPRESSION
     Dosage: 25 MG (DAILY), ORAL
     Route: 048
  2. LOSARTAN POTASSIUM (LOSARTAN POSTASSIUM) [Concomitant]
  3. CONJUGATED ESTROGENS [Concomitant]
  4. LIBRAX (CHORDIAZEPOXIDE HYDROCHLORIDE, CLIDINIUM BROMIDE) [Concomitant]

REACTIONS (1)
  - HYPONATRAEMIA [None]
